FAERS Safety Report 8931462 (Version 2)
Quarter: 2012Q4

REPORT INFORMATION
  Report Type: 
  Country: ZA (occurrence: ZA)
  Receive Date: 20121128
  Receipt Date: 20121221
  Transmission Date: 20130627
  Serious: Yes (Hospitalization, Other)
  Sender: FDA-Public Use
  Company Number: ZA-NOVOPROD-364590

PATIENT
  Age: 2 Week
  Sex: Male
  Weight: 4.8 kg

DRUGS (1)
  1. NOVOMIX 30 FLEXPEN [Suspect]
     Indication: GESTATIONAL DIABETES
     Dosage: 20 IU, qd
     Route: 064
     Dates: start: 20120807, end: 20121030

REACTIONS (5)
  - Foetal macrosomia [Unknown]
  - Jaundice neonatal [Recovered/Resolved]
  - Cardiac murmur [Recovered/Resolved]
  - Dyspnoea [Recovered/Resolved]
  - Foetal exposure during pregnancy [Unknown]
